FAERS Safety Report 15843005 (Version 3)
Quarter: 2019Q1

REPORT INFORMATION
  Report Type: Report from Study
  Country: BR (occurrence: BR)
  Receive Date: 20190118
  Receipt Date: 20190311
  Transmission Date: 20190417
  Serious: Yes (Other)
  Sender: FDA-Public Use
  Company Number: BR-JNJFOC-20190118624

PATIENT
  Age: 39 Year
  Sex: Male

DRUGS (2)
  1. STELARA [Suspect]
     Active Substance: USTEKINUMAB
     Indication: CROHN^S DISEASE
     Dosage: ONE SYRINGE EVERY 2 MONTHS.
     Route: 058
     Dates: start: 20181008
  2. IMOSEC [Concomitant]
     Active Substance: LOPERAMIDE
     Route: 065

REACTIONS (3)
  - Crohn^s disease [Unknown]
  - Anal abscess [Unknown]
  - Anal fistula [Unknown]

NARRATIVE: CASE EVENT DATE: 201812
